FAERS Safety Report 22299871 (Version 2)
Quarter: 2023Q2

REPORT INFORMATION
  Report Type: Spontaneous
  Country: US (occurrence: US)
  Receive Date: 20230509
  Receipt Date: 20230509
  Transmission Date: 20230721
  Serious: No
  Sender: FDA-Public Use
  Company Number: US-PFIZER INC-PV202300078442

PATIENT
  Sex: Female

DRUGS (1)
  1. INFLIXIMAB [Suspect]
     Active Substance: INFLIXIMAB
     Dosage: UNK

REACTIONS (3)
  - Musculoskeletal stiffness [Unknown]
  - Inflammatory pain [Unknown]
  - Hypoaesthesia [Unknown]
